FAERS Safety Report 4922109-6 (Version None)
Quarter: 2006Q1

REPORT INFORMATION
  Report Type: 
  Country: None (occurrence: None)
  Receive Date: 20060222
  Receipt Date: 20060222
  Transmission Date: 20060701
  Serious: Yes (Hospitalization)
  Sender: FDA-Public Use
  Company Number: None

PATIENT
  Age: 74 Year
  Sex: Male
  Weight: 95 kg

DRUGS (14)
  1. INSULIN [Suspect]
     Indication: DIABETES MELLITUS
     Dosage: 70/30 15U BID IM
     Route: 030
     Dates: start: 20010201, end: 20051101
  2. ATENOLOL [Concomitant]
  3. CLOPIDOGREL [Concomitant]
  4. DOC [Concomitant]
  5. EPOETIN [Concomitant]
  6. GATIFLOXACIN [Concomitant]
  7. HEPARIN [Concomitant]
  8. REGULAR INSULIN [Concomitant]
  9. IRON DEXTRAN [Concomitant]
  10. RANITIDINE [Concomitant]
  11. SENNA [Concomitant]
  12. SEVELAMER [Concomitant]
  13. SIMVASTATIN [Concomitant]
  14. TERAZOSIN [Concomitant]

REACTIONS (3)
  - BLOOD GLUCOSE DECREASED [None]
  - BLOOD GLUCOSE INCREASED [None]
  - LOSS OF CONSCIOUSNESS [None]
